FAERS Safety Report 13031992 (Version 3)
Quarter: 2018Q3

REPORT INFORMATION
  Report Type: Spontaneous
  Country: US (occurrence: US)
  Receive Date: 20161215
  Receipt Date: 20180925
  Transmission Date: 20181010
  Serious: No
  Sender: FDA-Public Use
  Company Number: US-PFIZER INC-2016572713

PATIENT
  Age: 81 Year
  Sex: Female

DRUGS (1)
  1. GABAPENTIN. [Suspect]
     Active Substance: GABAPENTIN
     Indication: NEUROPATHY PERIPHERAL
     Dosage: 1 DF, 3X/DAY
     Route: 048
     Dates: start: 2012

REACTIONS (2)
  - Drug ineffective for unapproved indication [Unknown]
  - Drug hypersensitivity [Unknown]
